FAERS Safety Report 7809325-0 (Version None)
Quarter: 2011Q4

REPORT INFORMATION
  Report Type: 
  Country: None (occurrence: None)
  Receive Date: 20111007
  Receipt Date: 20110928
  Transmission Date: 20120403
  Serious: Yes (Hospitalization, Disabling, Other)
  Sender: FDA-Public Use
  Company Number: 2009SP020441

PATIENT
  Age: 43 Year
  Sex: Female
  Weight: 79.3795 kg

DRUGS (6)
  1. IBUPROFEN (ADVIL) [Concomitant]
  2. CELEBREX [Concomitant]
  3. NORVASC [Concomitant]
  4. DIAZEPAM [Concomitant]
  5. FLONASE [Concomitant]
  6. NUVARING [Suspect]
     Indication: MENORRHAGIA
     Dates: start: 20061001, end: 20061201

REACTIONS (23)
  - PULMONARY EMBOLISM [None]
  - DERMAL CYST [None]
  - PALPITATIONS [None]
  - DEEP VEIN THROMBOSIS [None]
  - HEART RATE IRREGULAR [None]
  - ATELECTASIS [None]
  - PULMONARY HYPERTENSION [None]
  - PULMONARY VALVE INCOMPETENCE [None]
  - PAIN [None]
  - LOSS OF EMPLOYMENT [None]
  - RHINITIS ALLERGIC [None]
  - HEADACHE [None]
  - FATIGUE [None]
  - MITRAL VALVE INCOMPETENCE [None]
  - HYPERTENSION [None]
  - URINARY TRACT INFECTION [None]
  - ATRIAL FIBRILLATION [None]
  - PULMONARY INFARCTION [None]
  - VULVOVAGINITIS TRICHOMONAL [None]
  - CITROBACTER INFECTION [None]
  - SUPRAVENTRICULAR EXTRASYSTOLES [None]
  - TRICUSPID VALVE INCOMPETENCE [None]
  - PROTHROMBIN TIME SHORTENED [None]
